FAERS Safety Report 9632491 (Version 2)
Quarter: 2013Q4

REPORT INFORMATION
  Report Type: Report from Study
  Country: US (occurrence: US)
  Receive Date: 20131018
  Receipt Date: 20131205
  Transmission Date: 20140711
  Serious: Yes (Hospitalization)
  Sender: FDA-Public Use
  Company Number: US-ROCHE-1290306

PATIENT
  Age: 9 Year
  Sex: Female
  Weight: 28.15 kg

DRUGS (4)
  1. NUTROPIN [Suspect]
     Indication: GROWTH HORMONE DEFICIENCY
     Route: 058
     Dates: start: 20110725
  2. NUTROPIN [Suspect]
     Indication: GROWTH HORMONE DEFICIENCY
     Route: 058
     Dates: start: 20121112
  3. SINGULAIR [Concomitant]
     Indication: HYPERSENSITIVITY
     Dosage: 2P
     Route: 048
  4. FLOVENT [Concomitant]
     Indication: HYPERSENSITIVITY
     Dosage: 2 P
     Route: 065

REACTIONS (4)
  - Pancreatitis [Recovered/Resolved]
  - Pain [Not Recovered/Not Resolved]
  - Burning sensation [Not Recovered/Not Resolved]
  - Mass [Recovered/Resolved]
